FAERS Safety Report 25045785 (Version 2)
Quarter: 2025Q2

REPORT INFORMATION
  Report Type: Spontaneous
  Country: US (occurrence: US)
  Receive Date: 20250306
  Receipt Date: 20250604
  Transmission Date: 20250717
  Serious: No
  Sender: BRISTOL-MYERS SQUIBB COMPANY
  Company Number: US-BRISTOL-MYERS SQUIBB COMPANY-2025-034098

PATIENT
  Age: 79 Year

DRUGS (1)
  1. OPDUALAG [Suspect]
     Active Substance: NIVOLUMAB\RELATLIMAB-RMBW
     Indication: Product used for unknown indication
     Dosage: STRENGTH: 480/160MG?DOSE: 2-240/80MG (480/160MG)
     Route: 042

REACTIONS (1)
  - Hepatic enzyme abnormal [Unknown]

NARRATIVE: CASE EVENT DATE: 20250213
